FAERS Safety Report 9360914 (Version 1)
Quarter: 2013Q2

REPORT INFORMATION
  Report Type: Spontaneous
  Country: FR (occurrence: FR)
  Receive Date: 20130621
  Receipt Date: 20130621
  Transmission Date: 20140414
  Serious: Yes (Life-Threatening)
  Sender: FDA-Public Use
  Company Number: PHHY2013FR062195

PATIENT
  Age: 65 Year
  Sex: Male

DRUGS (6)
  1. CUBICIN [Suspect]
     Dosage: UNK
     Route: 042
     Dates: start: 20110606, end: 20110617
  2. VANCOMYCIN [Suspect]
     Dosage: UNK
     Route: 042
     Dates: start: 20110506, end: 20110510
  3. TAZOCILLINE [Suspect]
     Dosage: UNK
     Route: 042
     Dates: start: 20110506, end: 20110606
  4. TIENAM [Suspect]
     Dosage: 750 MG, TID
     Route: 042
     Dates: start: 20110606, end: 20110617
  5. CANCIDAS [Suspect]
     Dosage: 50 MG, UNK
     Route: 042
     Dates: start: 20110606, end: 20110617
  6. GENTAMICIN [Concomitant]
     Dosage: UNK
     Dates: start: 20110506

REACTIONS (2)
  - Prothrombin time shortened [Recovered/Resolved]
  - Coagulation factor V level decreased [Recovered/Resolved]
